FAERS Safety Report 11877888 (Version 2)
Quarter: 2016Q1

REPORT INFORMATION
  Report Type: Spontaneous
  Country: US (occurrence: US)
  Receive Date: 20151230
  Receipt Date: 20160105
  Transmission Date: 20160526
  Serious: No
  Sender: FDA-Public Use
  Company Number: US-HORIZON-ACT-0229-2015

PATIENT
  Age: 29 Year
  Sex: Male

DRUGS (2)
  1. ACTIMMUNE [Suspect]
     Active Substance: INTERFERON GAMMA-1B
     Indication: DERMATITIS CONTACT
     Dosage: 150 ?G 3 TIMES WEEKLY
  2. RIFAMPIN. [Concomitant]
     Active Substance: RIFAMPIN

REACTIONS (3)
  - Off label use [Unknown]
  - Dry skin [Unknown]
  - Influenza like illness [Recovered/Resolved]
